FAERS Safety Report 19544964 (Version 1)
Quarter: 2021Q3

REPORT INFORMATION
  Report Type: Spontaneous
  Country: IL (occurrence: IL)
  Receive Date: 20210713
  Receipt Date: 20210713
  Transmission Date: 20211014
  Serious: Yes (Other)
  Sender: FDA-Public Use
  Company Number: IL-ASSERTIO THERAPEUTICS, INC.-IL-2021AST000130

PATIENT
  Sex: Male

DRUGS (3)
  1. INTERFERON [Concomitant]
     Active Substance: INTERFERON
     Indication: PHAEOCHROMOCYTOMA
     Dosage: UNK
     Route: 065
  2. THALIDOMIDE [Concomitant]
     Active Substance: THALIDOMIDE
     Indication: PHAEOCHROMOCYTOMA
     Dosage: UNK
     Route: 065
  3. INDOMETHACIN ORAL SUSPENSION [Suspect]
     Active Substance: INDOMETHACIN
     Indication: PHAEOCHROMOCYTOMA
     Dosage: UNK
     Route: 065

REACTIONS (1)
  - Polyneuropathy [Unknown]
